FAERS Safety Report 8517319 (Version 3)
Quarter: 2012Q4

REPORT INFORMATION
  Report Type: 
  Country: US (occurrence: US)
  Receive Date: 20120417
  Receipt Date: 20121025
  Transmission Date: 20130627
  Serious: Yes (Hospitalization)
  Sender: FDA-Public Use
  Company Number: US-ASTRAZENECA-2011SE42985

PATIENT
  Age: 60 Year
  Sex: Female
  Weight: 55.8 kg

DRUGS (36)
  1. SEROQUEL [Suspect]
     Indication: MAJOR DEPRESSION
     Route: 048
     Dates: start: 2006
  2. SEROQUEL [Suspect]
     Indication: SCHIZOAFFECTIVE DISORDER
     Route: 048
     Dates: start: 2006
  3. SEROQUEL [Suspect]
     Indication: BIPOLAR DISORDER
     Route: 048
     Dates: start: 2006
  4. SEROQUEL [Suspect]
     Indication: MAJOR DEPRESSION
     Route: 048
  5. SEROQUEL [Suspect]
     Indication: SCHIZOAFFECTIVE DISORDER
     Route: 048
  6. SEROQUEL [Suspect]
     Indication: BIPOLAR DISORDER
     Route: 048
  7. SEROQUEL [Suspect]
     Indication: MAJOR DEPRESSION
     Route: 048
     Dates: start: 2010
  8. SEROQUEL [Suspect]
     Indication: SCHIZOAFFECTIVE DISORDER
     Route: 048
     Dates: start: 2010
  9. SEROQUEL [Suspect]
     Indication: BIPOLAR DISORDER
     Route: 048
     Dates: start: 2010
  10. SEROQUEL [Suspect]
     Indication: MAJOR DEPRESSION
     Route: 048
  11. SEROQUEL [Suspect]
     Indication: SCHIZOAFFECTIVE DISORDER
     Route: 048
  12. SEROQUEL [Suspect]
     Indication: BIPOLAR DISORDER
     Route: 048
  13. SEROQUEL [Suspect]
     Indication: MAJOR DEPRESSION
     Route: 048
  14. SEROQUEL [Suspect]
     Indication: SCHIZOAFFECTIVE DISORDER
     Route: 048
  15. SEROQUEL [Suspect]
     Indication: BIPOLAR DISORDER
     Route: 048
  16. SEROQUEL [Suspect]
     Indication: MAJOR DEPRESSION
     Dosage: 200 MG AT NIGHT THAN CHANGED IT TO THE AM
     Route: 048
     Dates: start: 201105
  17. SEROQUEL [Suspect]
     Indication: SCHIZOAFFECTIVE DISORDER
     Dosage: 200 MG AT NIGHT THAN CHANGED IT TO THE AM
     Route: 048
     Dates: start: 201105
  18. SEROQUEL [Suspect]
     Indication: BIPOLAR DISORDER
     Dosage: 200 MG AT NIGHT THAN CHANGED IT TO THE AM
     Route: 048
     Dates: start: 201105
  19. SEROQUEL [Suspect]
     Indication: MAJOR DEPRESSION
     Route: 048
  20. SEROQUEL [Suspect]
     Indication: SCHIZOAFFECTIVE DISORDER
     Route: 048
  21. SEROQUEL [Suspect]
     Indication: BIPOLAR DISORDER
     Route: 048
  22. SEROQUEL [Suspect]
     Indication: MAJOR DEPRESSION
     Route: 048
  23. SEROQUEL [Suspect]
     Indication: SCHIZOAFFECTIVE DISORDER
     Route: 048
  24. SEROQUEL [Suspect]
     Indication: BIPOLAR DISORDER
     Route: 048
  25. SEROQUEL [Suspect]
     Indication: MAJOR DEPRESSION
     Route: 048
  26. SEROQUEL [Suspect]
     Indication: SCHIZOAFFECTIVE DISORDER
     Route: 048
  27. SEROQUEL [Suspect]
     Indication: BIPOLAR DISORDER
     Route: 048
  28. SEROQUEL [Suspect]
     Indication: MAJOR DEPRESSION
     Route: 048
  29. SEROQUEL [Suspect]
     Indication: SCHIZOAFFECTIVE DISORDER
     Route: 048
  30. SEROQUEL [Suspect]
     Indication: BIPOLAR DISORDER
     Route: 048
  31. NEXIUM [Suspect]
     Indication: NAUSEA
     Route: 048
     Dates: start: 2010
  32. METFORMIN [Concomitant]
     Indication: EATING DISORDER
     Dates: start: 2010
  33. SONATA [Concomitant]
  34. ZOLOFT [Concomitant]
  35. KLONOPIN [Concomitant]
  36. ADDERALL [Concomitant]

REACTIONS (20)
  - Dehydration [Unknown]
  - Hangover [Unknown]
  - Micturition urgency [Unknown]
  - Nocturia [Unknown]
  - Enuresis [Unknown]
  - Coordination abnormal [Unknown]
  - Impaired driving ability [Unknown]
  - Impaired gastric emptying [Unknown]
  - Eating disorder [Unknown]
  - Nervousness [Unknown]
  - Logorrhoea [Unknown]
  - Anxiety [Unknown]
  - Abdominal discomfort [Unknown]
  - Insomnia [Unknown]
  - Nausea [Unknown]
  - Weight increased [Unknown]
  - Drug withdrawal syndrome [Unknown]
  - Somnolence [Unknown]
  - Drug ineffective [Unknown]
  - Drug dose omission [Unknown]
